FAERS Safety Report 11875943 (Version 1)
Quarter: 2015Q4

REPORT INFORMATION
  Report Type: Spontaneous
  Country: US (occurrence: US)
  Receive Date: 20151229
  Receipt Date: 20151229
  Transmission Date: 20160305
  Serious: No
  Sender: FDA-Public Use
  Company Number: US-BAYER-2015-497542

PATIENT
  Age: 53 Year
  Sex: Female
  Weight: 56.69 kg

DRUGS (1)
  1. ALEVE [Suspect]
     Active Substance: NAPROXEN SODIUM
     Indication: FIBROMYALGIA
     Dosage: 2 DF, ONCE
     Route: 048
     Dates: start: 20151220, end: 20151228

REACTIONS (3)
  - Migraine [Not Recovered/Not Resolved]
  - Product use issue [None]
  - Headache [Not Recovered/Not Resolved]
